FAERS Safety Report 6677206-4 (Version None)
Quarter: 2010Q2

REPORT INFORMATION
  Report Type: 
  Country: None (occurrence: None)
  Receive Date: 20100412
  Receipt Date: 20100409
  Transmission Date: 20101027
  Serious: Yes (Other)
  Sender: FDA-Public Use
  Company Number: AU-BRISTOL-MYERS SQUIBB COMPANY-14984512

PATIENT
  Age: 41 Year
  Sex: Male

DRUGS (5)
  1. KARVEA [Suspect]
     Dates: start: 20070101, end: 20080101
  2. ATENOLOL [Concomitant]
  3. PRESOLOL [Concomitant]
  4. CALCIUM CHANNEL BLOCKER [Concomitant]
  5. OLMETEC PLUS [Concomitant]

REACTIONS (9)
  - BLOOD PRESSURE INADEQUATELY CONTROLLED [None]
  - CHEST PAIN [None]
  - DIZZINESS [None]
  - HEADACHE [None]
  - HYPERHIDROSIS [None]
  - NEOPLASM [None]
  - PHAEOCHROMOCYTOMA [None]
  - SARCOIDOSIS [None]
  - TACHYCARDIA [None]
